FAERS Safety Report 4638725-5 (Version None)
Quarter: 2005Q2

REPORT INFORMATION
  Report Type: 
  Country: None (occurrence: None)
  Receive Date: 20050418
  Receipt Date: 20050418
  Transmission Date: 20051028
  Serious: Yes (Other)
  Sender: FDA-Public Use
  Company Number: None

PATIENT
  Age: 73 Year
  Sex: Male
  Weight: 73 kg

DRUGS (1)
  1. MEMANTINE [Suspect]
     Indication: DEMENTIA
     Dosage: 5 MG PO BID
     Route: 048
     Dates: start: 20041216, end: 20050131

REACTIONS (2)
  - AGGRESSION [None]
  - BLOOD PRESSURE INCREASED [None]
